FAERS Safety Report 8600532 (Version 3)
Quarter: 2013Q3

REPORT INFORMATION
  Report Type: Spontaneous
  Country: US (occurrence: US)
  Receive Date: 20120606
  Receipt Date: 20130702
  Transmission Date: 20140515
  Serious: Yes (Other)
  Sender: FDA-Public Use
  Company Number: US-AMGEN-USASP2012034479

PATIENT
  Age: 65 Year
  Sex: Female
  Weight: 133.79 kg

DRUGS (9)
  1. ENBREL [Suspect]
     Indication: RHEUMATOID ARTHRITIS
     Dosage: 50 MG, QWK
     Route: 058
     Dates: start: 201010
  2. LEVOXYL [Concomitant]
     Dosage: 112 MUG, QD
  3. MULTIVITAMINS, PLAIN [Concomitant]
     Dosage: UNK UNK, QD
  4. CIPRO                              /00697201/ [Concomitant]
     Dosage: 500 MG, AS NECESSARY
     Dates: end: 20130417
  5. ONDANSETRON [Concomitant]
     Dosage: 8 MG, AS NECESSARY
  6. PROMETHAZINE HCL [Concomitant]
     Dosage: 25 MG, AS NECESSARY, AT BEDTIME
  7. CELEBREX [Concomitant]
     Dosage: 200 MG, QD
  8. FOLIC ACID [Concomitant]
     Dosage: 1 MG, QD
     Dates: end: 20121217
  9. PREDNISONE [Concomitant]
     Dosage: 5 MG, UNK 2 ONCE A DAY ONCE DAILY

REACTIONS (11)
  - Endometrial adenocarcinoma [Unknown]
  - Abdominal wall neoplasm malignant [Unknown]
  - Uterine cancer [Unknown]
  - Pain in extremity [Unknown]
  - Rheumatoid arthritis [Unknown]
  - Musculoskeletal stiffness [Unknown]
  - Joint stiffness [Unknown]
  - Arthralgia [Unknown]
  - Musculoskeletal pain [Unknown]
  - Tenderness [Unknown]
  - Osteoarthritis [Unknown]
